FAERS Safety Report 19412056 (Version 1)
Quarter: 2021Q2

REPORT INFORMATION
  Report Type: Spontaneous
  Country: US (occurrence: US)
  Receive Date: 20210614
  Receipt Date: 20210614
  Transmission Date: 20210717
  Serious: No
  Sender: FDA-Public Use
  Company Number: US-COVIS PHARMA GMBH-2021COV00076

PATIENT
  Sex: Female
  Weight: 108.84 kg

DRUGS (8)
  1. FASENRA [Suspect]
     Active Substance: BENRALIZUMAB
     Indication: PNEUMONIA
     Dosage: EVERY EIGHT WEEKS
     Route: 058
     Dates: start: 202009
  2. PREDNISONE. [Concomitant]
     Active Substance: PREDNISONE
  3. DUONEB [Concomitant]
     Active Substance: ALBUTEROL SULFATE\IPRATROPIUM BROMIDE
  4. SINGULAIR [Concomitant]
     Active Substance: MONTELUKAST SODIUM
  5. FASENRA [Suspect]
     Active Substance: BENRALIZUMAB
     Indication: WHEEZING
  6. OMEPRAZOLE MAGNESIUM. [Suspect]
     Active Substance: OMEPRAZOLE MAGNESIUM
     Indication: GASTROOESOPHAGEAL REFLUX DISEASE
     Dosage: 20 MG
     Route: 048
  7. FASENRA [Suspect]
     Active Substance: BENRALIZUMAB
     Indication: COUGH
  8. NEBULIZER [Concomitant]
     Active Substance: DEVICE

REACTIONS (7)
  - Hypotension [Recovered/Resolved]
  - Adverse drug reaction [Recovered/Resolved]
  - Laryngitis [Not Recovered/Not Resolved]
  - Loss of consciousness [Recovered/Resolved]
  - Feeling abnormal [Recovered/Resolved]
  - Tenderness [Not Recovered/Not Resolved]
  - Dizziness [Recovered/Resolved]
